FAERS Safety Report 5876859-8 (Version None)
Quarter: 2008Q3

REPORT INFORMATION
  Report Type: 
  Country: None (occurrence: None)
  Receive Date: 20080909
  Receipt Date: 20080909
  Transmission Date: 20090109
  Serious: Yes (Other)
  Sender: FDA-Public Use
  Company Number: None

PATIENT
  Age: 59 Year
  Sex: Female

DRUGS (1)
  1. BREATHE RIGHT SNORE RELIEF ORAL SPRAY (BREATHE RIGHT SNORE RELIE) [Suspect]
     Indication: DRUG USE FOR UNKNOWN INDICATION
     Dosage: UNK / UNK / UNKNOWN

REACTIONS (1)
  - HEPATIC ENZYME INCREASED [None]
